FAERS Safety Report 21703394 (Version 1)
Quarter: 2022Q4

REPORT INFORMATION
  Report Type: Spontaneous
  Country: TR (occurrence: None)
  Receive Date: 20221209
  Receipt Date: 20221209
  Transmission Date: 20230112
  Serious: Yes (Other)
  Sender: FDA-Public Use
  Company Number: TR-ROCHE-3233589

PATIENT
  Age: 53 Year
  Sex: Female
  Weight: 91 kg

DRUGS (4)
  1. BEVACIZUMAB [Suspect]
     Active Substance: BEVACIZUMAB
     Indication: Product used for unknown indication
     Route: 042
     Dates: start: 20221129
  2. PHENIRAMINE [Concomitant]
     Active Substance: PHENIRAMINE
  3. DEXAMETHASONE [Concomitant]
     Active Substance: DEXAMETHASONE
  4. PROGAS [Concomitant]

REACTIONS (3)
  - Dyspnoea [Recovered/Resolved]
  - Rash [Recovering/Resolving]
  - Investigation abnormal [Unknown]

NARRATIVE: CASE EVENT DATE: 20221129
